FAERS Safety Report 5929726-5 (Version None)
Quarter: 2008Q4

REPORT INFORMATION
  Report Type: 
  Country: None (occurrence: None)
  Receive Date: 20081024
  Receipt Date: 20081015
  Transmission Date: 20090506
  Serious: Yes (Other)
  Sender: FDA-Public Use
  Company Number: DE-ABBOTT-08P-062-0480260-00

PATIENT
  Age: 19 Year
  Sex: Female

DRUGS (11)
  1. ADALIMUMAB [Suspect]
     Indication: RHEUMATOID ARTHRITIS
     Route: 058
     Dates: start: 20050301
  2. ADALIMUMAB [Suspect]
     Route: 058
  3. ADALIMUMAB [Suspect]
     Route: 058
     Dates: start: 20060601
  4. LEFLUNOMIDE [Suspect]
     Indication: RHEUMATOID ARTHRITIS
  5. FLUCLOXACILLIN MAGNESIUM [Suspect]
     Indication: DRUG USE FOR UNKNOWN INDICATION
  6. PREDNISOLONE SODIUM PHOSPHATE [Suspect]
     Indication: RHEUMATOID ARTHRITIS
     Dates: end: 20060601
  7. PREDNISOLONE SODIUM PHOSPHATE [Suspect]
  8. PREDNISOLONE SODIUM PHOSPHATE [Suspect]
     Dates: start: 20060601
  9. METOPROLOL TARTRATE [Suspect]
     Indication: HYPERTONIA
     Dates: start: 20051101
  10. RAMIPRIL [Suspect]
     Indication: HYPERTONIA
     Dates: start: 20051101
  11. CORTISONE PULSE THERAPY [Suspect]
     Indication: AUTOIMMUNE HEPATITIS
     Dosage: NOT REPORTED

REACTIONS (1)
  - LIVER INJURY [None]
